FAERS Safety Report 6063054-5 (Version None)
Quarter: 2009Q1

REPORT INFORMATION
  Report Type: 
  Country: None (occurrence: None)
  Receive Date: 20090203
  Receipt Date: 20090120
  Transmission Date: 20090719
  Serious: Yes (Other)
  Sender: FDA-Public Use
  Company Number: PHHY2009DE02295

PATIENT
  Sex: Female

DRUGS (1)
  1. PROVAS [Suspect]
     Dosage: 0.5 DF, QD

REACTIONS (1)
  - ERYTHEMA [None]
